FAERS Safety Report 14609406 (Version 5)
Quarter: 2018Q3

REPORT INFORMATION
  Report Type: Spontaneous
  Country: JP (occurrence: JP)
  Receive Date: 20180307
  Receipt Date: 20180911
  Transmission Date: 20181010
  Serious: Yes (Hospitalization)
  Sender: FDA-Public Use
  Company Number: JP-PFIZER INC-2018093882

PATIENT
  Age: 49 Year
  Sex: Male

DRUGS (2)
  1. CALSED [Suspect]
     Active Substance: AMRUBICIN HYDROCHLORIDE
     Indication: LUNG CARCINOMA CELL TYPE UNSPECIFIED STAGE IV
     Dosage: UNK
     Route: 040
  2. MEROPENEM. [Suspect]
     Active Substance: MEROPENEM
     Indication: GASTROINTESTINAL INFECTION
     Dosage: UNK
     Route: 041

REACTIONS (1)
  - Clostridium difficile infection [Unknown]
